FAERS Safety Report 24583403 (Version 2)
Quarter: 2024Q4

REPORT INFORMATION
  Report Type: Spontaneous
  Country: CN (occurrence: CN)
  Receive Date: 20241106
  Receipt Date: 20241113
  Transmission Date: 20250115
  Serious: Yes (Hospitalization, Other)
  Sender: ALKEM
  Company Number: None

PATIENT
  Age: 64 Year
  Sex: Female

DRUGS (10)
  1. MYCOPHENOLATE MOFETIL [Suspect]
     Active Substance: MYCOPHENOLATE MOFETIL
     Indication: Immunosuppressant drug therapy
     Dosage: 360 MILLIGRAM, QD
     Route: 048
  2. MYCOPHENOLATE MOFETIL [Suspect]
     Active Substance: MYCOPHENOLATE MOFETIL
     Dosage: 180 MILLIGRAM, QD
     Route: 048
  3. MYCOPHENOLATE MOFETIL [Suspect]
     Active Substance: MYCOPHENOLATE MOFETIL
     Dosage: UNK (RECHALLENGE DOSE)
     Route: 065
  4. TACROLIMUS [Suspect]
     Active Substance: TACROLIMUS
     Indication: Immunosuppressant drug therapy
     Dosage: 3 MILLIGRAM, BID
     Route: 048
  5. TACROLIMUS [Suspect]
     Active Substance: TACROLIMUS
     Dosage: 2 MILLIGRAM, BID
     Route: 048
  6. TACROLIMUS [Suspect]
     Active Substance: TACROLIMUS
     Dosage: 1 MILLIGRAM, BID
     Route: 048
  7. SIROLIMUS [Suspect]
     Active Substance: SIROLIMUS
     Indication: Immunosuppressant drug therapy
     Dosage: UNK
     Route: 065
  8. MEROPENEM [Concomitant]
     Active Substance: MEROPENEM
     Indication: Evidence based treatment
     Dosage: UNK
     Route: 065
  9. OSELTAMIVIR [Concomitant]
     Active Substance: OSELTAMIVIR
     Indication: Evidence based treatment
     Dosage: UNK
     Route: 065
  10. THYMALFASIN [Concomitant]
     Active Substance: THYMALFASIN
     Indication: Product used for unknown indication
     Dosage: 1.6 MILLIGRAM (THREE OCCASIONS)
     Route: 065

REACTIONS (17)
  - Lacunar infarction [Recovering/Resolving]
  - Cerebral atrophy [Recovering/Resolving]
  - Prohormone brain natriuretic peptide increased [Unknown]
  - Incoherent [Recovering/Resolving]
  - Pruritus [Unknown]
  - Anxiety [Recovering/Resolving]
  - Pulmonary oedema [Unknown]
  - Human herpesvirus 6 encephalitis [Recovered/Resolved]
  - Mycobacterium fortuitum infection [Unknown]
  - Enterococcal infection [Unknown]
  - Aspergillus infection [Unknown]
  - Blood creatinine increased [Unknown]
  - Pleural effusion [Unknown]
  - Human herpesvirus 7 infection [Unknown]
  - Candida infection [Unknown]
  - Bronchitis [Unknown]
  - Influenza [Unknown]

NARRATIVE: CASE EVENT DATE: 20220101
